FAERS Safety Report 8502962-X (Version None)
Quarter: 2012Q3

REPORT INFORMATION
  Report Type: 
  Country: None (occurrence: None)
  Receive Date: 20120711
  Receipt Date: 20120704
  Transmission Date: 20120928
  Serious: Yes (Hospitalization)
  Sender: FDA-Public Use
  Company Number: NZ-B.I. PHARMACEUTICALS,INC./RIDGEFIELD-2012-EU-03441GD

PATIENT

DRUGS (1)
  1. DABIGATRAN ETEXILATE [Suspect]
     Indication: ATRIAL FIBRILLATION

REACTIONS (4)
  - REBOUND EFFECT [None]
  - SPLENIC INFARCTION [None]
  - RENAL INFARCT [None]
  - GASTROINTESTINAL DISORDER [None]
